FAERS Safety Report 8129496-9 (Version None)
Quarter: 2012Q1

REPORT INFORMATION
  Report Type: 
  Country: None (occurrence: None)
  Receive Date: 20120103
  Receipt Date: 20111107
  Transmission Date: 20120608
  Serious: No
  Sender: FDA-Public Use
  Company Number: AE-2011-003150

PATIENT
  Age: 63 Year
  Sex: Male
  Weight: 99.7913 kg

DRUGS (3)
  1. INCIVEK [Suspect]
     Dosage: 750 MG, EVERY 7-9 HOURS
     Dates: start: 20110902
  2. PEGASYS [Concomitant]
  3. RIBAVIRIN [Concomitant]

REACTIONS (9)
  - RASH PRURITIC [None]
  - DIARRHOEA [None]
  - DECREASED APPETITE [None]
  - NERVOUSNESS [None]
  - ANORECTAL DISCOMFORT [None]
  - DISTURBANCE IN ATTENTION [None]
  - DYSGEUSIA [None]
  - TREMOR [None]
  - FATIGUE [None]
